FAERS Safety Report 4642555-8 (Version None)
Quarter: 2005Q2

REPORT INFORMATION
  Report Type: 
  Country: None (occurrence: None)
  Receive Date: 20050422
  Receipt Date: 20050412
  Transmission Date: 20051028
  Serious: Yes (Death)
  Sender: FDA-Public Use
  Company Number: GR-BRISTOL-MYERS SQUIBB COMPANY-12929592

PATIENT
  Age: 29 Year
  Sex: Male

DRUGS (4)
  1. ABILIFY [Suspect]
     Indication: SCHIZOAFFECTIVE DISORDER
     Route: 048
     Dates: start: 20050310, end: 20050401
  2. TAVOR [Concomitant]
     Dates: start: 20050307, end: 20050401
  3. NOZINAN [Concomitant]
     Dates: start: 20050307, end: 20050401
  4. EFFEXOR [Concomitant]
     Dates: start: 20050307, end: 20050401

REACTIONS (1)
  - COMPLETED SUICIDE [None]
